FAERS Safety Report 5930997-X (Version None)
Quarter: 2008Q4

REPORT INFORMATION
  Report Type: 
  Country: None (occurrence: None)
  Receive Date: 20081009
  Receipt Date: 20080529
  Transmission Date: 20090506
  Serious: Yes (Hospitalization)
  Sender: FDA-Public Use
  Company Number: LUP-0353

PATIENT
  Age: 86 Year
  Sex: Male

DRUGS (21)
  1. LISINOPRIL [Suspect]
     Indication: DRUG USE FOR UNKNOWN INDICATION
  2. FLUNISOLIDE [Concomitant]
  3. SERTRALINE (75 MILLIGRAM) [Concomitant]
  4. ALBUTEROL [Concomitant]
  5. IPRATROPIUM BROMIDE [Concomitant]
  6. ASPIRIN [Concomitant]
  7. CLOPIDOGREL [Concomitant]
  8. DONEZEPIL (10 MILIGRAM) [Concomitant]
  9. CYPROHEPTADINE (4 MILIGRAM) [Concomitant]
  10. FAMOTIDINE (40 MILIGRAM) [Concomitant]
  11. FUROSEMIDE (20 MILIGRAM) [Concomitant]
  12. NPH INSULIN, BEEF [Concomitant]
  13. MOMETASONE FUROATE [Concomitant]
  14. ISOSORBIDE MONONITRATE (15 MILIGRAM) [Concomitant]
  15. LEVETIRACETAM (1000 MILIGRAM) [Concomitant]
  16. MAGNESIUM GLUCONATE (500 MILIGRAM) [Concomitant]
  17. METOCLOPRAMIDE (10 MILIGRAM) [Concomitant]
  18. METOPROLOL SA (75 MILIGRAM) [Concomitant]
  19. MODAFINIL (200 MILIGRAM) [Concomitant]
  20. GLYCERIL TRINITRATE (0.4 MILIGRAM) [Concomitant]
  21. SIMVASTATIN (40 MILIGRAM) [Concomitant]

REACTIONS (3)
  - ANOREXIA [None]
  - DEHYDRATION [None]
  - NAUSEA [None]
